FAERS Safety Report 5570382-6 (Version None)
Quarter: 2007Q4

REPORT INFORMATION
  Report Type: 
  Country: None (occurrence: None)
  Receive Date: 20071221
  Receipt Date: 20071212
  Transmission Date: 20080405
  Serious: Yes (Hospitalization)
  Sender: FDA-Public Use
  Company Number: PHBS2007BR20683

PATIENT
  Age: 66 Year
  Sex: Female
  Weight: 64 kg

DRUGS (9)
  1. EXELON [Suspect]
     Dosage: 1.5 MG, QD
     Route: 048
  2. EXELON [Suspect]
     Indication: MEMORY IMPAIRMENT
     Dosage: 1.5 ML/D
     Route: 048
     Dates: start: 20071125
  3. RIVOTRIL [Concomitant]
     Indication: INSOMNIA
     Dosage: 2 MG, QHS
     Route: 048
     Dates: start: 20020101
  4. LIPITOR [Concomitant]
     Indication: BLOOD CHOLESTEROL INCREASED
     Dosage: 20 MG/D
     Route: 048
     Dates: start: 20040101
  5. SOMALGIN [Concomitant]
     Indication: COAGULOPATHY
     Dosage: 2 TO 5 TABLETS/D
     Route: 048
     Dates: start: 20040101
  6. RYTHMOL [Concomitant]
     Indication: ARRHYTHMIA
     Dosage: 1.5 TABLET/D
     Route: 048
     Dates: start: 20040101
  7. RANITIDINE [Concomitant]
     Indication: GASTRITIS
     Dosage: 1 TABLET/D
     Route: 048
  8. RANITIDINE [Concomitant]
     Dosage: 1 TABLET/D
     Route: 048
     Dates: start: 20050101
  9. TRILEPTAL [Concomitant]
     Dosage: 600 MG/D
     Route: 048
     Dates: start: 20071210

REACTIONS (8)
  - ABDOMINAL DISTENSION [None]
  - CEREBROVASCULAR ACCIDENT [None]
  - GASTRIC DILATATION [None]
  - HYPOAESTHESIA [None]
  - HYPOAESTHESIA ORAL [None]
  - NERVOUSNESS [None]
  - RETCHING [None]
  - VOMITING [None]
